FAERS Safety Report 15725112 (Version 2)
Quarter: 2019Q3

REPORT INFORMATION
  Report Type: Report from Study
  Country: DE (occurrence: DE)
  Receive Date: 20181215
  Receipt Date: 20190919
  Transmission Date: 20191004
  Serious: Yes (Hospitalization)
  Sender: FDA-Public Use
  Company Number: DE-MYLANLABS-2018M1092798

PATIENT
  Age: 62 Year
  Sex: Female

DRUGS (3)
  1. BENEPALI [Suspect]
     Active Substance: ETANERCEPT
     Indication: RHEUMATOID ARTHRITIS
     Dosage: 50 MILLIGRAM, QW
     Route: 058
     Dates: start: 201608
  2. ENBREL [Concomitant]
     Active Substance: ETANERCEPT
     Indication: PRODUCT USED FOR UNKNOWN INDICATION
     Dosage: UNK
     Dates: start: 201605
  3. METHOTREXATE. [Suspect]
     Active Substance: METHOTREXATE
     Indication: PRODUCT USED FOR UNKNOWN INDICATION
     Dosage: 5 MILLIGRAM, QW
     Dates: start: 201801

REACTIONS (7)
  - Spinal pain [Unknown]
  - Pain [Unknown]
  - Faecaloma [Recovered/Resolved]
  - Inflammation [Unknown]
  - Cystitis escherichia [Unknown]
  - Skin pressure mark [Unknown]
  - Arthropod bite [Unknown]

NARRATIVE: CASE EVENT DATE: 20180110
